FAERS Safety Report 4563646-6 (Version None)
Quarter: 2005Q1

REPORT INFORMATION
  Report Type: 
  Country: None (occurrence: None)
  Receive Date: 20050124
  Receipt Date: 20050106
  Transmission Date: 20050727
  Serious: Yes (Hospitalization)
  Sender: FDA-Public Use
  Company Number: ACO_0036_2004

PATIENT
  Age: 27 Year
  Sex: Female

DRUGS (4)
  1. TERNELIN [Suspect]
     Indication: INTERVERTEBRAL DISC PROTRUSION
     Dosage: 3  MG QDAY PO
     Route: 048
     Dates: start: 20041108, end: 20041207
  2. VOLTAREN [Suspect]
     Indication: INTERVERTEBRAL DISC PROTRUSION
     Dosage: 75 MG QDAY PO
     Route: 048
     Dates: start: 20041108, end: 20041207
  3. MUCOSTA [Suspect]
     Indication: INTERVERTEBRAL DISC PROTRUSION
     Dosage: 300 MG QDAY PO
     Route: 048
     Dates: start: 20041108, end: 20041207
  4. MECOBALAMIN [Concomitant]

REACTIONS (5)
  - ALANINE AMINOTRANSFERASE INCREASED [None]
  - ASPARTATE AMINOTRANSFERASE INCREASED [None]
  - BACK PAIN [None]
  - LIVER DISORDER [None]
  - LYMPHOCYTE STIMULATION TEST POSITIVE [None]
